FAERS Safety Report 17893150 (Version 5)
Quarter: 2020Q3

REPORT INFORMATION
  Report Type: Spontaneous
  Country: US (occurrence: US)
  Receive Date: 20200614
  Receipt Date: 20200918
  Transmission Date: 20201103
  Serious: Yes (Hospitalization, Other)
  Sender: FDA-Public Use
  Company Number: US-GLAXOSMITHKLINE-US2020AMR098318

PATIENT
  Sex: Female

DRUGS (4)
  1. ZEJULA [Suspect]
     Active Substance: NIRAPARIB
     Indication: OVARIAN CANCER
     Dosage: 200 MG, QD IN THE MORNING
     Route: 065
     Dates: start: 20200520
  2. ZEJULA [Suspect]
     Active Substance: NIRAPARIB
     Dosage: 200 MG, QD
     Route: 065
  3. ZEJULA [Suspect]
     Active Substance: NIRAPARIB
     Dosage: 100 MG, QD
     Route: 048
     Dates: start: 20200522
  4. MAGNESIUM SUPPLEMENTS [Concomitant]
     Active Substance: MAGNESIUM
     Indication: PRODUCT USED FOR UNKNOWN INDICATION
     Dosage: UNK

REACTIONS (9)
  - Photosensitivity reaction [Unknown]
  - Stomatitis [Unknown]
  - Pruritus [Unknown]
  - Underdose [Unknown]
  - Platelet count decreased [Unknown]
  - Erythema [Unknown]
  - Small intestinal obstruction [Unknown]
  - Blood pressure diastolic increased [Unknown]
  - Constipation [Unknown]
